FAERS Safety Report 17675451 (Version 1)
Quarter: 2020Q2

REPORT INFORMATION
  Report Type: Spontaneous
  Country: US (occurrence: US)
  Receive Date: 20200415
  Receipt Date: 20200415
  Transmission Date: 20200714
  Serious: Yes (Life-Threatening, Other)
  Sender: FDA-Public Use
  Company Number: None

PATIENT
  Age: 51 Year
  Sex: Female

DRUGS (1)
  1. CARVEDILOL CR CAP 20MG [Suspect]
     Active Substance: CARVEDILOL
     Dates: start: 20200110

REACTIONS (3)
  - Hypersensitivity [None]
  - Bradycardia [None]
  - Lip swelling [None]

NARRATIVE: CASE EVENT DATE: 20200120
